FAERS Safety Report 25410775 (Version 1)
Quarter: 2025Q2

REPORT INFORMATION
  Report Type: Report from Study
  Country: US (occurrence: US)
  Receive Date: 20250609
  Receipt Date: 20250609
  Transmission Date: 20250717
  Serious: Yes (Other)
  Sender: JOHNSON AND JOHNSON
  Company Number: US-JNJFOC-20250608853

PATIENT
  Age: 73 Year
  Sex: Female
  Weight: 77.11 kg

DRUGS (2)
  1. TREMFYA [Suspect]
     Active Substance: GUSELKUMAB
     Indication: Colitis ulcerative
     Route: 041
     Dates: start: 20250421
  2. TREMFYA [Suspect]
     Active Substance: GUSELKUMAB
     Route: 041
     Dates: start: 20250529

REACTIONS (6)
  - Syncope [Recovered/Resolved]
  - Hot flush [Recovered/Resolved]
  - Hypertension [Recovered/Resolved]
  - Infusion related reaction [Recovered/Resolved]
  - Palpitations [Recovered/Resolved]
  - Poor venous access [Unknown]

NARRATIVE: CASE EVENT DATE: 20250529
